FAERS Safety Report 19705964 (Version 5)
Quarter: 2021Q3

REPORT INFORMATION
  Report Type: Spontaneous
  Country: US (occurrence: US)
  Receive Date: 20210817
  Receipt Date: 20210924
  Transmission Date: 20211014
  Serious: Yes (Life-Threatening, Other)
  Sender: FDA-Public Use
  Company Number: US-BEH-2021134889

PATIENT
  Age: 46 Year
  Sex: Male
  Weight: 93 kg

DRUGS (6)
  1. PRIVIGEN [Suspect]
     Active Substance: HUMAN IMMUNOGLOBULIN G
     Indication: POLYOMAVIRUS VIRAEMIA
     Dosage: 50 GRAM IN 500 ML
     Route: 041
     Dates: start: 20210810, end: 20210810
  2. ACETAMINOPHEN. [Concomitant]
     Active Substance: ACETAMINOPHEN
     Dosage: 650 MILLIGRAM, SINGLE
     Route: 048
     Dates: start: 20210810
  3. PRIVIGEN [Suspect]
     Active Substance: HUMAN IMMUNOGLOBULIN G
     Dosage: 50 GRAM, SINGLE
     Route: 041
     Dates: start: 20210715
  4. PRIVIGEN [Suspect]
     Active Substance: HUMAN IMMUNOGLOBULIN G
     Dosage: 46 X 50 GM EACH (50 GM X 2 DOSES PER MONTH)
     Route: 041
     Dates: start: 20190923
  5. DIPHENHYDRAMINE. [Concomitant]
     Active Substance: DIPHENHYDRAMINE
     Dosage: 25 MILLIGRAM, SINGLE
     Route: 048
     Dates: start: 20210810
  6. METHYLPREDNISOLONE. [Concomitant]
     Active Substance: METHYLPREDNISOLONE
     Dosage: 40 MILLIGRAM, SINGLE
     Route: 040
     Dates: start: 20210810

REACTIONS (4)
  - Dyspnoea [Unknown]
  - Off label use [Unknown]
  - Swelling face [Unknown]
  - No adverse event [Unknown]

NARRATIVE: CASE EVENT DATE: 20210810
